FAERS Safety Report 8959971 (Version 1)
Quarter: 2012Q4

REPORT INFORMATION
  Report Type: Report from Study
  Country: US (occurrence: US)
  Receive Date: 20121212
  Receipt Date: 20121212
  Transmission Date: 20130627
  Serious: Yes (Hospitalization)
  Sender: FDA-Public Use
  Company Number: US-ROCHE-1165689

PATIENT
  Age: 78 Year
  Sex: Female

DRUGS (6)
  1. OMALIZUMAB [Suspect]
     Indication: ASTHMA
     Route: 058
     Dates: start: 20080916
  2. OXYGEN [Concomitant]
  3. ADVAIR [Concomitant]
  4. ALBUTEROL INHALER [Concomitant]
  5. DUONEB [Concomitant]
  6. SINGULAIR [Concomitant]

REACTIONS (3)
  - Upper respiratory tract infection [Unknown]
  - Asthma [Unknown]
  - Blood glucose increased [Unknown]
